FAERS Safety Report 8779312 (Version 1)
Quarter: 2012Q4

REPORT INFORMATION
  Report Type: 
  Country: US (occurrence: US)
  Receive Date: 20120911
  Receipt Date: 20120911
  Transmission Date: 20130627
  Serious: Yes (Other)
  Sender: FDA-Public Use
  Company Number: US-ELI_LILLY_AND_COMPANY-US201209000261

PATIENT
  Age: 64 Year
  Sex: Female

DRUGS (1)
  1. HUMATROPE [Suspect]
     Indication: PITUITARY TUMOUR
     Dosage: UNK

REACTIONS (3)
  - Pituitary tumour [Unknown]
  - Arthritis [Unknown]
  - Arthralgia [Unknown]
